FAERS Safety Report 22830209 (Version 5)
Quarter: 2024Q4

REPORT INFORMATION
  Report Type: Spontaneous
  Country: US (occurrence: US)
  Receive Date: 20230816
  Receipt Date: 20241007
  Transmission Date: 20250115
  Serious: Yes (Other)
  Sender: NOVARTIS
  Company Number: US-002147023-NVSC2023US178608

PATIENT
  Age: 80 Year
  Sex: Male
  Weight: 83.5 kg

DRUGS (2)
  1. PLUVICTO [Suspect]
     Active Substance: LUTETIUM LU-177 VIPIVOTIDE TETRAXETAN
     Indication: Prostate cancer metastatic
     Dosage: 9,4ML
     Route: 065
  2. PLUVICTO [Suspect]
     Active Substance: LUTETIUM LU-177 VIPIVOTIDE TETRAXETAN
     Dosage: 172.2 MCI LU177 PSMA
     Route: 042
     Dates: start: 20230630, end: 20230630

REACTIONS (7)
  - Sepsis [Unknown]
  - Cerebrovascular accident [Unknown]
  - Thrombocytopenia [Unknown]
  - Colon cancer [Unknown]
  - Ill-defined disorder [Unknown]
  - Chronic obstructive pulmonary disease [Unknown]
  - Anaemia [Unknown]

NARRATIVE: CASE EVENT DATE: 20230723
